FAERS Safety Report 9511240 (Version 1)
Quarter: 2013Q1

REPORT INFORMATION
  Report Type: Spontaneous
  Country: US (occurrence: None)
  Receive Date: 20130305
  Receipt Date: 20130305
  Transmission Date: 20140127
  Serious: Yes (Hospitalization, Other)
  Sender: FDA-Public Use
  Company Number: 163-21880-12120856

PATIENT
  Age: 74 Year
  Sex: Male

DRUGS (3)
  1. REVLIMID [Suspect]
     Indication: PLASMA CELL MYELOMA
     Dosage: 10 MG, 21 IN  21 D, PO
     Dates: start: 20110603
  2. ASPIRIN(ACETYLSALICYLIC ACID)(UNKNOWN) [Concomitant]
  3. LYRICA(PREGABALIN)(UNKNOWN) [Concomitant]

REACTIONS (2)
  - Pneumonia [None]
  - Drug dose omission [None]
